FAERS Safety Report 7407525-5 (Version None)
Quarter: 2011Q2

REPORT INFORMATION
  Report Type: 
  Country: None (occurrence: None)
  Receive Date: 20110412
  Receipt Date: 20110404
  Transmission Date: 20111010
  Serious: Yes (Hospitalization)
  Sender: FDA-Public Use
  Company Number: US-BIOGENIDEC-2011BI012984

PATIENT
  Age: 18 Year
  Sex: Female

DRUGS (1)
  1. TYSABRI [Suspect]
     Indication: MULTIPLE SCLEROSIS
     Route: 042
     Dates: start: 20110228, end: 20110228

REACTIONS (6)
  - URINARY RETENTION [None]
  - CONSTIPATION [None]
  - NEUROMYELITIS OPTICA [None]
  - FALL [None]
  - VEIN DISORDER [None]
  - ABASIA [None]
